FAERS Safety Report 6240678-3 (Version None)
Quarter: 2009Q2

REPORT INFORMATION
  Report Type: 
  Country: None (occurrence: None)
  Receive Date: 20090623
  Receipt Date: 20090108
  Transmission Date: 20091009
  Serious: No
  Sender: FDA-Public Use
  Company Number: US-ASTRAZENECA-2009UW00697

PATIENT
  Age: 85 Year
  Sex: Female

DRUGS (2)
  1. PULMICORT RESPULES [Suspect]
     Dosage: TWICE DAILY
     Route: 055
     Dates: start: 20081001
  2. PROVANA [Suspect]
     Dosage: UNKNOWN
     Route: 065

REACTIONS (2)
  - BRONCHITIS [None]
  - TREMOR [None]
